FAERS Safety Report 5845444-6 (Version None)
Quarter: 2008Q3

REPORT INFORMATION
  Report Type: 
  Country: None (occurrence: None)
  Receive Date: 20080731
  Receipt Date: 20080425
  Transmission Date: 20090109
  Serious: No
  Sender: FDA-Public Use
  Company Number: US200805000558

PATIENT
  Age: 78 Year
  Sex: Female
  Weight: 104.3 kg

DRUGS (9)
  1. BYETTA [Suspect]
     Indication: TYPE 2 DIABETES MELLITUS
     Dosage: 5 UG, SUBCUTANEOUS ; 10 UG, 2/D, SUBCUTANEOUS
     Route: 058
     Dates: start: 20070101
  2. ACTOS /USA/ (PIOGLITAZONE HYDROCHLORIDE) [Concomitant]
  3. METOPROLOL TARTRATE [Concomitant]
  4. LISINOPRIL /USA/ (LISINOPRIL) [Concomitant]
  5. LOVASTATIN [Concomitant]
  6. IMDUR [Concomitant]
  7. PEPCID [Concomitant]
  8. FUROSEMIDE (FUROSEMIDE) [Concomitant]
  9. PROTONIX [Concomitant]

REACTIONS (3)
  - ASTHMA [None]
  - BLOOD GLUCOSE INCREASED [None]
  - FOOD CRAVING [None]
